FAERS Safety Report 22599674 (Version 1)
Quarter: 2023Q2

REPORT INFORMATION
  Report Type: Spontaneous
  Country: US (occurrence: US)
  Receive Date: 20230614
  Receipt Date: 20230614
  Transmission Date: 20230721
  Serious: Yes (Other)
  Sender: FDA-Public Use
  Company Number: US-BRISTOL-MYERS SQUIBB COMPANY-2023-082618

PATIENT
  Age: 86 Year
  Sex: Male

DRUGS (6)
  1. SPRYCEL [Suspect]
     Active Substance: DASATINIB
     Indication: Acute lymphocytic leukaemia
     Dosage: DOSE : UNKNOWN, INFORMATION NOT PROVI;     FREQ : UNKNOWN, INFORMATION NOT PROVIDED IN EMAIL.
  2. ASPIRIN [Concomitant]
     Active Substance: ASPIRIN
  3. ATORVASTATIN CALCIUM [Concomitant]
     Active Substance: ATORVASTATIN CALCIUM
  4. BUMETANIDE [Concomitant]
     Active Substance: BUMETANIDE
  5. FAMOTIDINE [Concomitant]
     Active Substance: FAMOTIDINE
  6. METOPROLOL SUCCINATE [Concomitant]
     Active Substance: METOPROLOL SUCCINATE
     Dosage: ER

REACTIONS (1)
  - Cardiac valve disease [Unknown]
